FAERS Safety Report 17724745 (Version 1)
Quarter: 2020Q2

REPORT INFORMATION
  Report Type: Spontaneous
  Country: US (occurrence: US)
  Receive Date: 20200429
  Receipt Date: 20200429
  Transmission Date: 20200714
  Serious: No
  Sender: FDA-Public Use
  Company Number: US-GRANULES INDIA LIMITED-2083318

PATIENT
  Age: 90 Year
  Sex: Female

DRUGS (1)
  1. FEXOFENADINE HCL 180MG TABLET [Suspect]
     Active Substance: FEXOFENADINE HYDROCHLORIDE
     Indication: HYPERSENSITIVITY
     Route: 048

REACTIONS (3)
  - Nocturia [Recovered/Resolved]
  - Therapeutic product effect variable [Unknown]
  - Sleep disorder [Recovered/Resolved]
